FAERS Safety Report 9931879 (Version 1)
Quarter: 2014Q1

REPORT INFORMATION
  Report Type: Spontaneous
  Country: US (occurrence: None)
  Receive Date: 20140227
  Receipt Date: 20140227
  Transmission Date: 20141002
  Serious: Yes (Disabling, Other)
  Sender: FDA-Public Use
  Company Number: None

PATIENT
  Age: 32 Year
  Sex: Male
  Weight: 95.71 kg

DRUGS (5)
  1. FLUOXETINE HCL - DISCONTINUED BRAND [Suspect]
     Indication: DEPRESSION
     Route: 048
     Dates: start: 20131105, end: 20131215
  2. RISPERIDONE [Concomitant]
  3. SERTALINE [Concomitant]
  4. LAMICTAL [Concomitant]
  5. OMEPRAZOLE [Concomitant]

REACTIONS (2)
  - Dry mouth [None]
  - Gastrooesophageal reflux disease [None]
